FAERS Safety Report 5130603-0 (Version None)
Quarter: 2006Q3

REPORT INFORMATION
  Report Type: 
  Country: None (occurrence: None)
  Receive Date: 20060829
  Receipt Date: 20060504
  Transmission Date: 20061208
  Serious: No
  Sender: FDA-Public Use
  Company Number: PHEH2006US05948

PATIENT
  Age: 43 Year
  Sex: Male

DRUGS (1)
  1. EXJADE [Suspect]
     Indication: SICKLE CELL ANAEMIA
     Dosage: 2500 MG, QD, ORAL
     Route: 048
     Dates: start: 20060315

REACTIONS (1)
  - BLOOD CREATININE INCREASED [None]
